FAERS Safety Report 8595220-9 (Version None)
Quarter: 2012Q3

REPORT INFORMATION
  Report Type: 
  Country: None (occurrence: None)
  Receive Date: 20120815
  Receipt Date: 20120807
  Transmission Date: 20120928
  Serious: No
  Sender: FDA-Public Use
  Company Number: US-BAYER-2012-081471

PATIENT
  Age: 95 Year
  Sex: Female
  Weight: 47 kg

DRUGS (5)
  1. ASPIRIN [Concomitant]
  2. OTC EYE DROP FOR DRY EYES [Concomitant]
     Indication: DRY EYE
  3. ALEVE (CAPLET) [Suspect]
     Indication: ARTHRITIS
     Dosage: 1 DF, BID
     Route: 048
     Dates: start: 20120730
  4. ASPIRIN [Concomitant]
  5. PRESCRIPTION EYE DROPS [Concomitant]

REACTIONS (1)
  - ARTHRALGIA [None]
